FAERS Safety Report 5055683-2 (Version None)
Quarter: 2006Q3

REPORT INFORMATION
  Report Type: 
  Country: None (occurrence: None)
  Receive Date: 20060719
  Receipt Date: 20060303
  Transmission Date: 20061208
  Serious: No
  Sender: FDA-Public Use
  Company Number: US-AMGEN-KDL171483

PATIENT
  Sex: Male

DRUGS (1)
  1. PROCRIT [Suspect]
     Indication: ANAEMIA

REACTIONS (5)
  - ATRIAL FIBRILLATION [None]
  - CHEST PAIN [None]
  - CONDITION AGGRAVATED [None]
  - MUSCLE SPASMS [None]
  - PALPITATIONS [None]
